FAERS Safety Report 5339432-6 (Version None)
Quarter: 2007Q2

REPORT INFORMATION
  Report Type: 
  Country: None (occurrence: None)
  Receive Date: 20070525
  Receipt Date: 20070515
  Transmission Date: 20071010
  Serious: Yes (Disabling)
  Sender: FDA-Public Use
  Company Number: 2007-02361

PATIENT
  Age: 50 Year
  Sex: Female

DRUGS (1)
  1. THIORIDAZINE HCL [Suspect]
     Indication: PSYCHOTIC DISORDER
     Dosage: 2000 MG, DAILY FOR 6 WEEKS, UNKNOWN
     Dates: start: 19720101, end: 19720101

REACTIONS (1)
  - BLINDNESS [None]
